FAERS Safety Report 6594484-0 (Version None)
Quarter: 2010Q1

REPORT INFORMATION
  Report Type: 
  Country: None (occurrence: None)
  Receive Date: 20100222
  Receipt Date: 20100217
  Transmission Date: 20100710
  Serious: Yes (Death)
  Sender: FDA-Public Use
  Company Number: JP-GILEAD-2010-0027176

PATIENT
  Sex: Male

DRUGS (5)
  1. VIREAD [Suspect]
     Indication: HIV INFECTION
     Route: 048
     Dates: start: 20040510, end: 20091219
  2. ZIAGEN [Suspect]
     Indication: HIV INFECTION
     Dates: start: 20000515, end: 20091219
  3. VIRAMUNE [Suspect]
     Indication: HIV INFECTION
     Route: 048
     Dates: start: 20000607, end: 20091219
  4. VIRAMUNE [Suspect]
     Dates: start: 20000522, end: 20000606
  5. BLOPRESS [Suspect]
     Indication: HYPERTENSION
     Route: 048
     Dates: end: 20091219

REACTIONS (1)
  - DEATH [None]
